FAERS Safety Report 9701787 (Version 2)
Quarter: 2013Q4

REPORT INFORMATION
  Report Type: Spontaneous
  Country: CH (occurrence: CH)
  Receive Date: 20131121
  Receipt Date: 20131205
  Transmission Date: 20140711
  Serious: Yes (Other)
  Sender: FDA-Public Use
  Company Number: PHHY2013CH132665

PATIENT
  Age: 68 Year
  Sex: 0

DRUGS (2)
  1. CLOZAPINE [Suspect]
     Indication: SCHIZOPHRENIA
  2. FLUVOXAMINE [Interacting]
     Indication: SCHIZOPHRENIA

REACTIONS (3)
  - Toxicity to various agents [Unknown]
  - Ileus paralytic [Unknown]
  - Drug interaction [Unknown]
